FAERS Safety Report 9467636 (Version 1)
Quarter: 2013Q3

REPORT INFORMATION
  Report Type: Report from Study
  Country: CA (occurrence: CA)
  Receive Date: 20130821
  Receipt Date: 20130821
  Transmission Date: 20140515
  Serious: Yes (Other)
  Sender: FDA-Public Use
  Company Number: PHHY2013CA090087

PATIENT
  Age: 43 Year
  Sex: Female

DRUGS (3)
  1. CLOZARIL [Suspect]
     Dosage: UNK
     Dates: start: 20060303
  2. CLOZARIL [Suspect]
     Dosage: 1500 MG, (3 DOSES OF 500MG IN 24 HOURS)
     Dates: start: 20130813
  3. CLOZARIL [Suspect]
     Dosage: UNK UKN, UNK

REACTIONS (1)
  - Accidental overdose [Unknown]
